FAERS Safety Report 7843246-2 (Version None)
Quarter: 2011Q4

REPORT INFORMATION
  Report Type: 
  Country: None (occurrence: None)
  Receive Date: 20111025
  Receipt Date: 20111019
  Transmission Date: 20120403
  Serious: Yes (Other)
  Sender: FDA-Public Use
  Company Number: US-PFIZER INC-2011252683

PATIENT
  Sex: Female
  Weight: 72.562 kg

DRUGS (4)
  1. GENOTROPIN [Suspect]
     Indication: DWARFISM
     Dosage: 0.4 MG, UNK
     Dates: start: 20111015
  2. HUMATROPE [Suspect]
     Indication: DWARFISM
     Dosage: 0.2 MG, UNK
  3. OMNITROPE [Suspect]
     Indication: DWARFISM
     Dosage: 0.2 MG, UNK
     Dates: start: 20110501, end: 20110101
  4. THYROID TAB [Concomitant]
     Indication: THYROID DISORDER
     Dosage: UNK

REACTIONS (2)
  - HYPERSENSITIVITY [None]
  - HORMONE LEVEL ABNORMAL [None]
